FAERS Safety Report 5356622-7 (Version None)
Quarter: 2007Q2

REPORT INFORMATION
  Report Type: 
  Country: None (occurrence: None)
  Receive Date: 20070614
  Receipt Date: 20070607
  Transmission Date: 20071010
  Serious: Yes (Other)
  Sender: FDA-Public Use
  Company Number: PHBS2007BE09519

PATIENT
  Sex: Female

DRUGS (2)
  1. MIACALCIN [Suspect]
     Indication: WRIST FRACTURE
     Dosage: UNK, UNK
     Dates: start: 20070517, end: 20070524
  2. SOTALOL HCL [Concomitant]

REACTIONS (2)
  - EXTRASYSTOLES [None]
  - NAUSEA [None]
